FAERS Safety Report 16361659 (Version 1)
Quarter: 2019Q2

REPORT INFORMATION
  Report Type: Spontaneous
  Country: CN (occurrence: CN)
  Receive Date: 20190528
  Receipt Date: 20190528
  Transmission Date: 20190711
  Serious: Yes (Other)
  Sender: FDA-Public Use
  Company Number: CN-ROCHE-2316683

PATIENT
  Age: 17 Year
  Sex: Female

DRUGS (13)
  1. RITUXIMAB. [Suspect]
     Active Substance: RITUXIMAB
     Indication: DIFFUSE LARGE B-CELL LYMPHOMA
  2. RITUXIMAB. [Suspect]
     Active Substance: RITUXIMAB
     Indication: NON-HODGKIN^S LYMPHOMA
     Dosage: DAY0
     Route: 065
  3. VINDESINE [Concomitant]
     Active Substance: VINDESINE
     Indication: NON-HODGKIN^S LYMPHOMA
     Dosage: DAY1
     Route: 065
  4. CYCLOPHOSPHAMIDE. [Concomitant]
     Active Substance: CYCLOPHOSPHAMIDE
     Indication: NON-HODGKIN^S LYMPHOMA
     Dosage: DAY1
     Route: 065
  5. PREDNISONE. [Concomitant]
     Active Substance: PREDNISONE
     Indication: NON-HODGKIN^S LYMPHOMA
     Dosage: FROM DAY1 TO DAY5
     Route: 065
  6. PIRARUBICIN [Concomitant]
     Active Substance: PIRARUBICIN
  7. METHOTREXATE. [Concomitant]
     Active Substance: METHOTREXATE
     Indication: NON-HODGKIN^S LYMPHOMA
  8. CYCLOPHOSPHAMIDE. [Concomitant]
     Active Substance: CYCLOPHOSPHAMIDE
     Dosage: DAY6
     Route: 065
  9. PIRARUBICIN [Concomitant]
     Active Substance: PIRARUBICIN
     Indication: NON-HODGKIN^S LYMPHOMA
     Dosage: DAY1
     Route: 065
  10. DEXAMETHASONE. [Concomitant]
     Active Substance: DEXAMETHASONE
     Indication: NON-HODGKIN^S LYMPHOMA
     Dosage: FROM DAY1 TO DAY5
     Route: 065
  11. PIRARUBICIN [Concomitant]
     Active Substance: PIRARUBICIN
     Dosage: FROM DAY1 TO DAY4
     Route: 065
  12. DEXAMETHASONE. [Concomitant]
     Active Substance: DEXAMETHASONE
     Dosage: FROM DAY1 TO DAY5
     Route: 065
  13. VINDESINE [Concomitant]
     Active Substance: VINDESINE

REACTIONS (3)
  - Granulocyte count decreased [Unknown]
  - Platelet count [Unknown]
  - Lumbar puncture [Unknown]
